FAERS Safety Report 11794696 (Version 1)
Quarter: 2015Q4

REPORT INFORMATION
  Report Type: Report from Study
  Country: US (occurrence: CA)
  Receive Date: 20151202
  Receipt Date: 20151202
  Transmission Date: 20160305
  Serious: Yes (Other)
  Sender: FDA-Public Use
  Company Number: CA-CELGENE-CAN-2015116832

PATIENT
  Sex: Male

DRUGS (1)
  1. REVLIMID [Suspect]
     Active Substance: LENALIDOMIDE
     Indication: MYELODYSPLASTIC SYNDROME
     Route: 065
     Dates: end: 201412

REACTIONS (5)
  - Dry skin [Unknown]
  - Pruritus [Unknown]
  - Dehydration [Unknown]
  - No therapeutic response [Unknown]
  - Dementia Alzheimer^s type [Unknown]
